FAERS Safety Report 6566247-3 (Version None)
Quarter: 2010Q1

REPORT INFORMATION
  Report Type: 
  Country: None (occurrence: None)
  Receive Date: 20100202
  Receipt Date: 20100121
  Transmission Date: 20100710
  Serious: Yes (Congenital Anomaly)
  Sender: FDA-Public Use
  Company Number: US-BRISTOL-MYERS SQUIBB COMPANY-14946750

PATIENT
  Age: 1 Day
  Sex: Female
  Weight: 3 kg

DRUGS (5)
  1. REYATAZ [Suspect]
     Dosage: NO OF COURSE - 1 400MG/DAY 08MAY09 COURSE:2
     Route: 064
     Dates: start: 20090312
  2. KALETRA [Suspect]
     Dosage: 4 DF - 4 TABS NO OF COURSE - 1
     Route: 064
     Dates: start: 20090217, end: 20090312
  3. TRUVADA [Suspect]
     Dosage: 1 DF - 1 TABS NO OF COURSE - 1
     Route: 064
     Dates: start: 20090217
  4. NORVIR [Suspect]
     Dosage: NO OF COURSE - 1
     Route: 064
     Dates: start: 20090312
  5. RETROVIR [Suspect]
     Dosage: NO OF COURSE - 1
     Route: 042
     Dates: start: 20090806, end: 20090807

REACTIONS (2)
  - CONGENITAL ACROCHORDON [None]
  - SKULL MALFORMATION [None]
